FAERS Safety Report 12225819 (Version 1)
Quarter: 2016Q1

REPORT INFORMATION
  Report Type: Spontaneous
  Country: AU (occurrence: AU)
  Receive Date: 20160331
  Receipt Date: 20160331
  Transmission Date: 20160526
  Serious: Yes (Other)
  Sender: FDA-Public Use
  Company Number: AU-ROCHE-1734651

PATIENT
  Sex: Male

DRUGS (1)
  1. GAZYVA [Suspect]
     Active Substance: OBINUTUZUMAB
     Indication: PRODUCT USED FOR UNKNOWN INDICATION
     Dosage: DATE OF 6TH CYCLE OF OBINUTUZUMAB (1000 MG): 30/MAR/2016
     Route: 065

REACTIONS (1)
  - Renal impairment [Unknown]
